FAERS Safety Report 5814631-5 (Version None)
Quarter: 2008Q3

REPORT INFORMATION
  Report Type: 
  Country: None (occurrence: None)
  Receive Date: 20080718
  Receipt Date: 20070801
  Transmission Date: 20090109
  Serious: No
  Sender: FDA-Public Use
  Company Number: US-KINGPHARMUSA00001-K200700968

PATIENT

DRUGS (1)
  1. LEVOXYL [Suspect]
     Dosage: 100 MCG , QD
     Route: 048

REACTIONS (1)
  - RASH [None]
